FAERS Safety Report 4988397-5 (Version None)
Quarter: 2006Q2

REPORT INFORMATION
  Report Type: 
  Country: None (occurrence: None)
  Receive Date: 20060502
  Receipt Date: 20060420
  Transmission Date: 20061013
  Serious: Yes (Life-Threatening)
  Sender: FDA-Public Use
  Company Number: GB-AVENTIS-200614483GDDC

PATIENT
  Age: 60 Year
  Sex: Female

DRUGS (7)
  1. TRIMETHOPRIM [Suspect]
     Indication: URINARY TRACT INFECTION
     Dosage: DOSE: UNK
  2. METRONIDAZOLE [Suspect]
     Indication: URINARY TRACT INFECTION
     Dosage: DOSE: UNK
  3. CEPHALEXIN [Concomitant]
     Indication: URINARY TRACT INFECTION
     Dosage: DOSE: UNK
  4. NIFEDIPINE [Concomitant]
     Dosage: DOSE: UNK
  5. ACEBUTOLOL [Concomitant]
     Dosage: DOSE: UNK
  6. INDAPAMIDE [Concomitant]
     Dosage: DOSE: UNK
  7. WARFARIN SODIUM [Concomitant]
     Indication: PULMONARY EMBOLISM
     Dosage: DOSE: UNK

REACTIONS (8)
  - DEEP VEIN THROMBOSIS [None]
  - HYPOVOLAEMIC SHOCK [None]
  - INTERNATIONAL NORMALISED RATIO INCREASED [None]
  - MUSCLE HAEMORRHAGE [None]
  - PROTHROMBIN TIME PROLONGED [None]
  - PYREXIA [None]
  - RETROPERITONEAL HAEMATOMA [None]
  - WHITE BLOOD CELL COUNT INCREASED [None]
